FAERS Safety Report 13324161 (Version 1)
Quarter: 2017Q1

REPORT INFORMATION
  Report Type: Spontaneous
  Country: JP (occurrence: JP)
  Receive Date: 20170310
  Receipt Date: 20170310
  Transmission Date: 20170428
  Serious: Yes (Death, Hospitalization)
  Sender: FDA-Public Use
  Company Number: JP-TEVA-746216ROM

PATIENT
  Age: 30 Year
  Sex: Female

DRUGS (8)
  1. PREDNISOLONE. [Suspect]
     Active Substance: PREDNISOLONE
     Indication: GRANULOMATOSIS WITH POLYANGIITIS
     Dosage: 13 MG/DAY; THEN INCREASED TO 50 MG/DAY
     Route: 065
  2. RITUXIMAB [Suspect]
     Active Substance: RITUXIMAB
     Indication: GRANULOMATOSIS WITH POLYANGIITIS
     Dosage: 375 MG/M2; ON HOSPITAL DAYS 35, 42, 55 AND 62
     Route: 065
  3. VOGLIBOSE [Suspect]
     Active Substance: VOGLIBOSE
     Indication: HYPERGLYCAEMIA
     Route: 065
  4. SULFAMETHOXAZOLE [Concomitant]
     Active Substance: SULFAMETHOXAZOLE
     Dosage: 800 MG/DAY
     Route: 065
  5. TRIMETHOPRIM. [Concomitant]
     Active Substance: TRIMETHOPRIM
     Dosage: 160 MG/DAY
     Route: 065
  6. METHOTREXATE. [Concomitant]
     Active Substance: METHOTREXATE
     Indication: GRANULOMATOSIS WITH POLYANGIITIS
     Dosage: 15 MG/WEEK
     Route: 065
  7. PREDNISOLONE. [Suspect]
     Active Substance: PREDNISOLONE
     Dosage: 50 MG/DAY, THEN DECREASED TO 33 MG/DAY
     Route: 065
  8. PREDNISOLONE. [Suspect]
     Active Substance: PREDNISOLONE
     Dosage: 33 MG/DAY
     Route: 065

REACTIONS (6)
  - Constipation [Unknown]
  - Disseminated intravascular coagulation [Fatal]
  - Haemorrhage [Fatal]
  - Abdominal pain [Unknown]
  - Varicella zoster virus infection [Fatal]
  - Cytomegalovirus infection [Fatal]
